FAERS Safety Report 23449259 (Version 2)
Quarter: 2024Q1

REPORT INFORMATION
  Report Type: Spontaneous
  Country: IR (occurrence: IR)
  Receive Date: 20240129
  Receipt Date: 20240213
  Transmission Date: 20240409
  Serious: Yes (Life-Threatening, Hospitalization, Other)
  Sender: FDA-Public Use
  Company Number: IR-STRIDES ARCOLAB LIMITED-2024SP001019

PATIENT
  Age: 58 Year
  Sex: Female

DRUGS (2)
  1. PREDNISOLONE [Suspect]
     Active Substance: PREDNISOLONE
     Indication: Rheumatoid arthritis
     Dosage: 5 MILLIGRAM EVERY OTHER DAY
     Route: 065
  2. HYDROXYCHLOROQUINE [Concomitant]
     Active Substance: HYDROXYCHLOROQUINE
     Indication: Rheumatoid arthritis
     Dosage: 200 MILLIGRAM/DAILY
     Route: 065

REACTIONS (6)
  - Iliac artery rupture [Recovered/Resolved]
  - Peripheral artery thrombosis [Recovered/Resolved]
  - Embolism [Recovered/Resolved]
  - Cardiac valve vegetation [Recovered/Resolved]
  - Aspergillus infection [Recovered/Resolved]
  - Fungal endocarditis [Recovered/Resolved]
